FAERS Safety Report 8232341-4 (Version None)
Quarter: 2012Q1

REPORT INFORMATION
  Report Type: 
  Country: None (occurrence: None)
  Receive Date: 20120323
  Receipt Date: 20120319
  Transmission Date: 20120608
  Serious: Yes (Hospitalization, Congenital Anomaly)
  Sender: FDA-Public Use
  Company Number: US-GLAXOSMITHKLINE-A0951257A

PATIENT
  Sex: Male

DRUGS (3)
  1. MULTI-VITAMINS [Concomitant]
     Route: 064
  2. IRON SUPPLEMENTS [Concomitant]
     Route: 064
  3. PAXIL CR [Suspect]
     Indication: DEPRESSION
     Dosage: 25MG AT NIGHT
     Route: 064
     Dates: start: 20030506

REACTIONS (2)
  - FOETAL EXPOSURE DURING PREGNANCY [None]
  - FALLOT'S TETRALOGY [None]
